FAERS Safety Report 7685070-X (Version None)
Quarter: 2011Q3

REPORT INFORMATION
  Report Type: 
  Country: None (occurrence: None)
  Receive Date: 20110816
  Receipt Date: 20110803
  Transmission Date: 20111222
  Serious: Yes (Hospitalization)
  Sender: FDA-Public Use
  Company Number: US-UCBSA-037536

PATIENT

DRUGS (7)
  1. PROVIGIL [Concomitant]
  2. FENTANYL [Concomitant]
  3. LANTOPRAZOLE [Concomitant]
  4. WELLBUTRIN [Concomitant]
  5. CIMZIA [Suspect]
     Indication: CROHN'S DISEASE
     Route: 058
  6. CYMBALTA [Concomitant]
  7. NORCO [Concomitant]

REACTIONS (4)
  - STAPHYLOCOCCAL INFECTION [None]
  - STAPHYLOCOCCAL ABSCESS [None]
  - SMALL INTESTINAL PERFORATION [None]
  - DIARRHOEA [None]
